FAERS Safety Report 6921545-6 (Version None)
Quarter: 2010Q3

REPORT INFORMATION
  Report Type: 
  Country: None (occurrence: None)
  Receive Date: 20100812
  Receipt Date: 20100802
  Transmission Date: 20110219
  Serious: Yes (Hospitalization)
  Sender: FDA-Public Use
  Company Number: PHHY2010MX22856

PATIENT
  Age: 73 Year
  Sex: Female

DRUGS (5)
  1. FEMARA [Suspect]
     Indication: BREAST CANCER
     Dosage: 1 TABLET (2.5 MG) PER DAY
     Route: 048
     Dates: start: 20090325, end: 20090709
  2. ANTIHYPERTENSIVES [Concomitant]
     Indication: HYPERTENSION
  3. CHEMOTHERAPEUTICS NOS [Concomitant]
     Dosage: UNK
     Dates: start: 20090701
  4. RADIOTHERAPY [Concomitant]
     Dosage: UNK
     Dates: start: 20090701
  5. ARIMIDEX [Concomitant]

REACTIONS (3)
  - DRUG INEFFECTIVE [None]
  - MALIGNANT NEOPLASM PROGRESSION [None]
  - MASTECTOMY [None]
